FAERS Safety Report 6819894-5 (Version None)
Quarter: 2010Q3

REPORT INFORMATION
  Report Type: 
  Country: None (occurrence: None)
  Receive Date: 20100707
  Receipt Date: 20100628
  Transmission Date: 20110219
  Serious: Yes (Hospitalization)
  Sender: FDA-Public Use
  Company Number: US-ROCHE-588983

PATIENT
  Sex: Female
  Weight: 61.6 kg

DRUGS (3)
  1. TRASTUZUMAB [Suspect]
     Indication: BREAST CANCER
     Dosage: LAST DOSE PRIOR TO SAE: 02 SEPTEMBER 2008
     Route: 042
     Dates: start: 20080819
  2. ABRAXANE [Suspect]
     Indication: BREAST CANCER
     Dosage: LAST DOSE PRIOR TO SAE: 02 SEPTEMBER 2008
     Route: 042
     Dates: start: 20080819
  3. CARBOPLATIN [Suspect]
     Indication: BREAST CANCER
     Dosage: LAST DOSE PRIOR TO SAE: 02 SEPTEMBER 2008
     Route: 042
     Dates: start: 20080819

REACTIONS (1)
  - HERPES ZOSTER [None]
